FAERS Safety Report 20344666 (Version 3)
Quarter: 2023Q1

REPORT INFORMATION
  Report Type: Spontaneous
  Country: PT (occurrence: PT)
  Receive Date: 20220118
  Receipt Date: 20230206
  Transmission Date: 20230417
  Serious: Yes (Hospitalization, Other)
  Sender: FDA-Public Use
  Company Number: None

PATIENT
  Age: 56 Year
  Sex: Female

DRUGS (3)
  1. SERTRALINE [Interacting]
     Active Substance: SERTRALINE HYDROCHLORIDE
     Indication: Anxiety
     Dosage: 50 MILLIGRAM, QD
     Route: 065
  2. PROPRANOLOL [Interacting]
     Active Substance: PROPRANOLOL HYDROCHLORIDE
     Indication: Product used for unknown indication
     Dosage: 40 MILLIGRAM
     Route: 065
  3. QUETIAPINE [Interacting]
     Active Substance: QUETIAPINE
     Indication: Anxiety
     Dosage: 25 MILLIGRAM
     Route: 065

REACTIONS (9)
  - Vision blurred [Unknown]
  - Hyponatraemic seizure [Recovered/Resolved]
  - Diarrhoea [Unknown]
  - Hyponatraemia [Recovered/Resolved]
  - Generalised tonic-clonic seizure [Recovering/Resolving]
  - Muscular weakness [Unknown]
  - Asthenia [Unknown]
  - Polydipsia [Unknown]
  - Drug interaction [Unknown]
